FAERS Safety Report 4765376-4 (Version None)
Quarter: 2005Q3

REPORT INFORMATION
  Report Type: 
  Country: None (occurrence: None)
  Receive Date: 20050906
  Receipt Date: 20050822
  Transmission Date: 20060218
  Serious: Yes (Other)
  Sender: FDA-Public Use
  Company Number: S05-UKI-03165-01

PATIENT
  Age: 34 Year
  Sex: Male

DRUGS (3)
  1. CIPRALEX (ESCITALOPRAM) [Suspect]
     Indication: DEPRESSION
     Dosage: 10 MG QD PO
     Route: 048
     Dates: start: 20050408
  2. FLUOXETINE [Concomitant]
  3. ARTHROTEC [Concomitant]

REACTIONS (1)
  - WEIGHT INCREASED [None]
